FAERS Safety Report 8783330 (Version 3)
Quarter: 2016Q2

REPORT INFORMATION
  Report Type: Spontaneous
  Country: US (occurrence: US)
  Receive Date: 20120913
  Receipt Date: 20160428
  Transmission Date: 20160815
  Serious: Yes (Other)
  Sender: FDA-Public Use
  Company Number: US-ASTRAZENECA-2012SE69275

PATIENT
  Age: 20544 Day
  Sex: Female

DRUGS (9)
  1. CAPRELSA [Suspect]
     Active Substance: VANDETANIB
     Route: 048
     Dates: start: 20120703
  2. LISINOPRIL. [Suspect]
     Active Substance: LISINOPRIL
     Route: 048
  3. KEPPRA [Concomitant]
     Active Substance: LEVETIRACETAM
  4. VITAMIN D [Concomitant]
     Active Substance: CHOLECALCIFEROL
  5. SYNTHROID [Concomitant]
     Active Substance: LEVOTHYROXINE SODIUM
  6. FOLIC ACID. [Concomitant]
     Active Substance: FOLIC ACID
  7. CAPRELSA [Suspect]
     Active Substance: VANDETANIB
     Route: 048
     Dates: start: 20120815
  8. LYRICA [Concomitant]
     Active Substance: PREGABALIN
  9. CAPRELSA [Suspect]
     Active Substance: VANDETANIB
     Route: 048
     Dates: start: 20120720

REACTIONS (6)
  - Seizure [Unknown]
  - Chest discomfort [Unknown]
  - Blood pressure increased [Unknown]
  - Migraine [Unknown]
  - Cough [Unknown]
  - Somnolence [Recovered/Resolved]

NARRATIVE: CASE EVENT DATE: 20120829
